FAERS Safety Report 21216486 (Version 1)
Quarter: 2022Q3

REPORT INFORMATION
  Report Type: Spontaneous
  Country: US (occurrence: None)
  Receive Date: 20220815
  Receipt Date: 20220815
  Transmission Date: 20221027
  Serious: Yes (Other)
  Sender: FDA-Public Use
  Company Number: None

PATIENT
  Age: 58 Year
  Sex: Female

DRUGS (1)
  1. ADDERALL [Suspect]
     Active Substance: AMPHETAMINE ASPARTATE\AMPHETAMINE SULFATE\DEXTROAMPHETAMINE SACCHARATE\DEXTROAMPHETAMINE SULFATE
     Indication: Post-acute COVID-19 syndrome
     Dosage: OTHER QUANTITY : 30 TABLET(S);?FREQUENCY : TWICE A DAY;?
     Route: 048
     Dates: start: 20220810, end: 20220810

REACTIONS (15)
  - Tremor [None]
  - Anxiety [None]
  - Feeling abnormal [None]
  - Dry mouth [None]
  - Hyperhidrosis [None]
  - Insomnia [None]
  - Nausea [None]
  - Vomiting [None]
  - Diarrhoea [None]
  - Abdominal pain upper [None]
  - Blood pressure increased [None]
  - Heart rate increased [None]
  - Palpitations [None]
  - Fear [None]
  - Product complaint [None]

NARRATIVE: CASE EVENT DATE: 20220810
